FAERS Safety Report 9881238 (Version 3)
Quarter: 2014Q1

REPORT INFORMATION
  Report Type: Report from Study
  Country: AU (occurrence: AU)
  Receive Date: 20140207
  Receipt Date: 20140319
  Transmission Date: 20141002
  Serious: Yes (Other)
  Sender: FDA-Public Use
  Company Number: AU-PFIZER INC-2014026036

PATIENT
  Age: 50 Year
  Sex: Male
  Weight: 82 kg

DRUGS (6)
  1. EPLERENONE [Suspect]
     Dosage: 25 MG, 1X/DAY
     Route: 048
     Dates: start: 20140111, end: 201401
  2. DIAMICRON MR [Concomitant]
     Indication: DIABETES MELLITUS
     Dosage: UNK
     Route: 048
  3. JANUMET [Concomitant]
     Indication: DIABETES MELLITUS
     Dosage: UNK
     Route: 048
  4. TRITACE [Concomitant]
     Indication: HYPERTENSION
     Dosage: UNK
     Route: 048
  5. ZANIDIP [Concomitant]
     Indication: HYPERTENSION
     Dosage: UNK
     Route: 048
  6. SERETIDE [Concomitant]
     Indication: ASTHMA
     Dosage: UNK
     Route: 055

REACTIONS (1)
  - Acute generalised exanthematous pustulosis [Recovered/Resolved]
